FAERS Safety Report 21296081 (Version 1)
Quarter: 2022Q3

REPORT INFORMATION
  Report Type: Spontaneous
  Country: None (occurrence: JP)
  Receive Date: 20220906
  Receipt Date: 20220906
  Transmission Date: 20221027
  Serious: Yes (Life-Threatening, Hospitalization)
  Sender: FDA-Public Use
  Company Number: JP-Jiangsu Hengrui Medicine Co., Ltd.-2132563

PATIENT
  Sex: Female

DRUGS (2)
  1. IRINOTECAN HYDROCHLORIDE [Suspect]
     Active Substance: IRINOTECAN HYDROCHLORIDE
     Indication: Cervix carcinoma recurrent
  2. NEDAPLATIN [Suspect]
     Active Substance: NEDAPLATIN

REACTIONS (5)
  - Septic shock [Unknown]
  - Neutropenic colitis [Unknown]
  - Diarrhoea [Unknown]
  - Myelosuppression [Unknown]
  - Product use in unapproved indication [Unknown]
